FAERS Safety Report 23111477 (Version 1)
Quarter: 2023Q4

REPORT INFORMATION
  Report Type: Spontaneous
  Country: CN (occurrence: None)
  Receive Date: 20231026
  Receipt Date: 20231026
  Transmission Date: 20240109
  Serious: Yes (Other)
  Sender: FDA-Public Use
  Company Number: 2023A241503

PATIENT
  Sex: Female

DRUGS (1)
  1. SYMBICORT [Suspect]
     Active Substance: BUDESONIDE\FORMOTEROL FUMARATE DIHYDRATE
     Dosage: UNKNOWN,UNKNOWN ,160, 60INHALATIONS UNKNOWN
     Route: 055

REACTIONS (6)
  - Thrombosis [Unknown]
  - Eye haemorrhage [Unknown]
  - Nausea [Unknown]
  - Vomiting [Unknown]
  - Skin hyperpigmentation [Unknown]
  - Cough [Unknown]

NARRATIVE: CASE EVENT DATE: 20231011
